FAERS Safety Report 9610807 (Version 2)
Quarter: 2013Q4

REPORT INFORMATION
  Report Type: Spontaneous
  Country: US (occurrence: US)
  Receive Date: 20131009
  Receipt Date: 20131029
  Transmission Date: 20140711
  Serious: No
  Sender: FDA-Public Use
  Company Number: US-BAXTER-2013BAX038084

PATIENT
  Age: 87 Year
  Sex: Female
  Weight: 67.19 kg

DRUGS (4)
  1. GAMMAGARD LIQUID [Suspect]
     Indication: HYPOGAMMAGLOBULINAEMIA
     Route: 042
     Dates: start: 201208
  2. GAMMAGARD LIQUID [Suspect]
     Route: 042
     Dates: start: 20130926, end: 20130926
  3. GAMMAGARD LIQUID [Suspect]
     Route: 042
     Dates: start: 20130926, end: 20130926
  4. VELCADE [Concomitant]
     Indication: PLASMA CELL MYELOMA
     Route: 058
     Dates: end: 201203

REACTIONS (4)
  - Infusion site extravasation [Recovered/Resolved]
  - Infusion site induration [Recovered/Resolved]
  - Contusion [Recovered/Resolved]
  - Pain [Recovered/Resolved]
